FAERS Safety Report 7326650-0 (Version None)
Quarter: 2011Q1

REPORT INFORMATION
  Report Type: 
  Country: None (occurrence: None)
  Receive Date: 20110302
  Receipt Date: 20110215
  Transmission Date: 20110831
  Serious: Yes (Other)
  Sender: FDA-Public Use
  Company Number: CH-JNJFOC-20110206135

PATIENT
  Age: 34 Year
  Sex: Female

DRUGS (2)
  1. ZYRTEC [Suspect]
  2. ZYRTEC [Suspect]
     Indication: URTICARIA

REACTIONS (2)
  - ABORTION INDUCED [None]
  - DRUG EXPOSURE DURING PREGNANCY [None]
